FAERS Safety Report 11179068 (Version 1)
Quarter: 2015Q2

REPORT INFORMATION
  Report Type: Spontaneous
  Country: DE (occurrence: DE)
  Receive Date: 20150610
  Receipt Date: 20150610
  Transmission Date: 20150821
  Serious: Yes (Death, Other)
  Sender: FDA-Public Use
  Company Number: DE-BAXTER-2015BAX029965

PATIENT
  Sex: Male

DRUGS (1)
  1. HUMAN ALBUMIN 50 G/L BAXTER [Suspect]
     Active Substance: ALBUMIN (HUMAN)
     Indication: PRODUCT USED FOR UNKNOWN INDICATION
     Route: 065

REACTIONS (2)
  - Death [Fatal]
  - Varices oesophageal [Unknown]

NARRATIVE: CASE EVENT DATE: 20150602
